FAERS Safety Report 21360234 (Version 1)
Quarter: 2022Q3

REPORT INFORMATION
  Report Type: Spontaneous
  Country: NP (occurrence: NP)
  Receive Date: 20220921
  Receipt Date: 20220921
  Transmission Date: 20221026
  Serious: Yes (Death)
  Sender: FDA-Public Use
  Company Number: NP-PFIZER INC-PV202200067146

PATIENT
  Age: 53 Year
  Sex: Female

DRUGS (1)
  1. BOSULIF [Suspect]
     Active Substance: BOSUTINIB MONOHYDRATE
     Indication: Chronic myeloid leukaemia
     Dosage: 500 MG (5 X 100MG TABLETS)

REACTIONS (1)
  - Death [Fatal]

NARRATIVE: CASE EVENT DATE: 20220216
